FAERS Safety Report 11030634 (Version 1)
Quarter: 2015Q2

REPORT INFORMATION
  Report Type: Spontaneous
  Country: JP (occurrence: None)
  Receive Date: 20150413
  Receipt Date: 20150413
  Transmission Date: 20150821
  Serious: Yes (Death)
  Sender: FDA-Public Use
  Company Number: PR 7307

PATIENT
  Age: 67 Year
  Sex: Male

DRUGS (2)
  1. ZIOPTAN [Suspect]
     Active Substance: TAFLUPROST
     Indication: NORMAL TENSION GLAUCOMA
     Dosage: GTT, UNKNOWN, BOTH EYES
     Dates: start: 20101201
  2. TS-1 (GIMERACIL, OTERACIL POTASSIUM, TEGAFUR) [Concomitant]

REACTIONS (4)
  - Anaemia [None]
  - Corneal erosion [None]
  - Gastric cancer [None]
  - Vision blurred [None]

NARRATIVE: CASE EVENT DATE: 20121011
